FAERS Safety Report 20592084 (Version 4)
Quarter: 2022Q2

REPORT INFORMATION
  Report Type: Report from Study
  Country: ES (occurrence: ES)
  Receive Date: 20220314
  Receipt Date: 20220603
  Transmission Date: 20220721
  Serious: Yes (Death, Hospitalization)
  Sender: FDA-Public Use
  Company Number: ES-GILEAD-2022-0572578

PATIENT
  Sex: Male
  Weight: 58 kg

DRUGS (1)
  1. SACITUZUMAB GOVITECAN [Suspect]
     Active Substance: SACITUZUMAB GOVITECAN
     Indication: Transitional cell cancer of the renal pelvis and ureter
     Dosage: 10 MG/KG, ON DAY 1 AND DAY 8 OF A 21 DAY CYCLE
     Route: 042
     Dates: start: 20220217, end: 20220224

REACTIONS (3)
  - Pulmonary sepsis [Fatal]
  - Pancytopenia [Not Recovered/Not Resolved]
  - Pneumonia [Not Recovered/Not Resolved]

NARRATIVE: CASE EVENT DATE: 20220305
